FAERS Safety Report 24953156 (Version 3)
Quarter: 2025Q1

REPORT INFORMATION
  Report Type: Spontaneous
  Country: US (occurrence: US)
  Receive Date: 20250211
  Receipt Date: 20250307
  Transmission Date: 20250409
  Serious: Yes (Death, Other)
  Sender: DR REDDYS
  Company Number: None

PATIENT
  Sex: Male
  Weight: 11.9 kg

DRUGS (7)
  1. TACROLIMUS [Suspect]
     Active Substance: TACROLIMUS
     Indication: Immunosuppressant drug therapy
  2. TACROLIMUS [Suspect]
     Active Substance: TACROLIMUS
     Indication: Inflammatory bowel disease
  3. USTEKINUMAB [Suspect]
     Active Substance: USTEKINUMAB
     Indication: Immunodeficiency
  4. USTEKINUMAB [Suspect]
     Active Substance: USTEKINUMAB
     Indication: Inflammatory bowel disease
  5. METHOTREXATE [Suspect]
     Active Substance: METHOTREXATE
     Indication: Immunosuppressant drug therapy
  6. VEDOLIZUMAB [Concomitant]
     Active Substance: VEDOLIZUMAB
     Indication: Immunodeficiency
  7. VEDOLIZUMAB [Concomitant]
     Active Substance: VEDOLIZUMAB
     Indication: Inflammatory bowel disease

REACTIONS (4)
  - Drug ineffective [Fatal]
  - Posterior reversible encephalopathy syndrome [Recovered/Resolved]
  - Mucosal inflammation [Unknown]
  - Product use in unapproved indication [Unknown]
